FAERS Safety Report 19977263 (Version 2)
Quarter: 2022Q1

REPORT INFORMATION
  Report Type: Spontaneous
  Country: JP (occurrence: JP)
  Receive Date: 20211021
  Receipt Date: 20220225
  Transmission Date: 20220424
  Serious: Yes (Other)
  Sender: FDA-Public Use
  Company Number: JP-NOVARTISPH-NVSJ2021JP017136

PATIENT
  Age: 68 Year
  Sex: Male
  Weight: 72.3 kg

DRUGS (12)
  1. ENTRESTO [Suspect]
     Active Substance: SACUBITRIL\VALSARTAN
     Indication: Cardiac failure
     Dosage: 100 MG
     Route: 048
     Dates: start: 202109
  2. ENTRESTO [Suspect]
     Active Substance: SACUBITRIL\VALSARTAN
     Dosage: 200 MG
     Route: 048
     Dates: start: 202109
  3. VALSARTAN [Suspect]
     Active Substance: VALSARTAN
     Indication: Cardiac failure
     Dosage: 40 MG
     Route: 065
     Dates: start: 202109
  4. VALSARTAN [Suspect]
     Active Substance: VALSARTAN
     Dosage: 20 MG
     Route: 065
     Dates: start: 202109
  5. VALSARTAN [Suspect]
     Active Substance: VALSARTAN
     Dosage: 40 MG
     Route: 065
     Dates: start: 202109
  6. FUROSEMIDE [Concomitant]
     Active Substance: FUROSEMIDE
     Indication: Cardiac failure
     Dosage: 20 MG
     Route: 042
     Dates: start: 202109
  7. SPIRONOLACTONE [Concomitant]
     Active Substance: SPIRONOLACTONE
     Indication: Cardiac failure
     Dosage: 25 MG
     Route: 065
     Dates: start: 202109
  8. DAPAGLIFLOZIN [Concomitant]
     Active Substance: DAPAGLIFLOZIN
     Indication: Cardiac failure
     Dosage: 10 MG
     Route: 065
     Dates: start: 202109
  9. BISOPROLOL [Concomitant]
     Active Substance: BISOPROLOL
     Indication: Cardiac failure
     Dosage: 0.625 MG
     Route: 065
     Dates: start: 202109
  10. BISOPROLOL [Concomitant]
     Active Substance: BISOPROLOL
     Dosage: 1.25 MG
     Route: 065
     Dates: start: 202109
  11. NITROGLYCERIN [Concomitant]
     Active Substance: NITROGLYCERIN
     Indication: Cardiac failure
     Dosage: 50 MG/100ML  3ML/H
     Route: 041
     Dates: start: 202109
  12. HEPARIN [Concomitant]
     Active Substance: HEPARIN SODIUM
     Indication: Cardiac failure
     Dosage: 10000 U/DAY
     Route: 041
     Dates: start: 202109

REACTIONS (2)
  - Shock haemorrhagic [Unknown]
  - Haematemesis [Recovered/Resolved]

NARRATIVE: CASE EVENT DATE: 20210901
